FAERS Safety Report 9882062 (Version 2)
Quarter: 2014Q1

REPORT INFORMATION
  Report Type: Report from Study
  Country: US (occurrence: US)
  Receive Date: 20140207
  Receipt Date: 20140306
  Transmission Date: 20141002
  Serious: Yes (Other)
  Sender: FDA-Public Use
  Company Number: US-GILEAD-2014-0093872

PATIENT
  Age: 79 Year
  Sex: Male

DRUGS (1)
  1. RANOLAZINE [Suspect]
     Indication: PRODUCT USED FOR UNKNOWN INDICATION
     Dosage: 500 MG, BID
     Route: 065
     Dates: start: 201312

REACTIONS (5)
  - Vocal cord disorder [Unknown]
  - Urinary tract infection [Unknown]
  - Urinary incontinence [Unknown]
  - Dysuria [Unknown]
  - Urinary retention [Unknown]
